FAERS Safety Report 25632157 (Version 2)
Quarter: 2025Q3

REPORT INFORMATION
  Report Type: Report from Study
  Country: TW (occurrence: TW)
  Receive Date: 20250801
  Receipt Date: 20250811
  Transmission Date: 20251021
  Serious: Yes (Hospitalization)
  Sender: JOHNSON AND JOHNSON
  Company Number: TW-JNJFOC-20250726487

PATIENT
  Age: 70 Year
  Sex: Male

DRUGS (1)
  1. RYBREVANT [Suspect]
     Active Substance: AMIVANTAMAB-VMJW
     Indication: Non-small cell lung cancer
     Route: 065
     Dates: start: 20250710

REACTIONS (7)
  - Heart rate increased [Unknown]
  - Carbon dioxide increased [Unknown]
  - Peripheral swelling [Not Recovered/Not Resolved]
  - Dyspnoea [Not Recovered/Not Resolved]
  - Infusion related reaction [Unknown]
  - Haemoglobin decreased [Unknown]
  - Haematochezia [Recovering/Resolving]
